FAERS Safety Report 23033128 (Version 1)
Quarter: 2023Q4

REPORT INFORMATION
  Report Type: Report from Study
  Country: FR (occurrence: FR)
  Receive Date: 20231005
  Receipt Date: 20231005
  Transmission Date: 20240109
  Serious: Yes (Other)
  Sender: FDA-Public Use
  Company Number: FR-AstraZeneca-2023A038304

PATIENT
  Sex: Male
  Weight: 82 kg

DRUGS (3)
  1. GEMCITABINE HYDROCHLORIDE [Suspect]
     Active Substance: GEMCITABINE HYDROCHLORIDE
     Indication: Bile duct cancer
     Dosage: UNK
     Dates: start: 20221219, end: 20230221
  2. CISPLATIN [Suspect]
     Active Substance: CISPLATIN
     Indication: Bile duct cancer
     Dosage: UNK
     Dates: start: 20221219, end: 20230221
  3. IMFINZI [Suspect]
     Active Substance: DURVALUMAB
     Indication: Bile duct cancer
     Route: 051
     Dates: start: 20230109, end: 20230221

REACTIONS (2)
  - Toxicity to various agents [Recovered/Resolved]
  - Nausea [Recovered/Resolved]
